FAERS Safety Report 10267966 (Version 1)
Quarter: 2014Q2

REPORT INFORMATION
  Report Type: Spontaneous
  Country: AU (occurrence: AU)
  Receive Date: 20140630
  Receipt Date: 20140630
  Transmission Date: 20141212
  Serious: Yes (Hospitalization)
  Sender: FDA-Public Use
  Company Number: AU-BAYER-2014-094544

PATIENT
  Age: 89 Year
  Sex: Female

DRUGS (4)
  1. XARELTO [Suspect]
     Indication: ATRIAL FIBRILLATION
     Dosage: UNK
     Dates: start: 201310
  2. XARELTO [Interacting]
     Indication: CEREBROVASCULAR ACCIDENT PROPHYLAXIS
     Dosage: 15 MG, UNK
  3. XARELTO [Interacting]
     Indication: AORTIC VALVE REPLACEMENT
  4. ASPRO [Interacting]

REACTIONS (3)
  - Blindness [None]
  - Epistaxis [None]
  - Drug interaction [None]
